FAERS Safety Report 24303105 (Version 1)
Quarter: 2024Q3

REPORT INFORMATION
  Report Type: Spontaneous
  Country: US (occurrence: US)
  Receive Date: 20240910
  Receipt Date: 20240910
  Transmission Date: 20241017
  Serious: No
  Sender: TEVA
  Company Number: US-TEVA-VS-3237715

PATIENT
  Age: 24 Year
  Sex: Male

DRUGS (3)
  1. UZEDY [Suspect]
     Active Substance: RISPERIDONE
     Indication: Bipolar I disorder
     Dosage: FREQUENCY: ONCE
     Route: 065
     Dates: start: 20240821, end: 20240821
  2. ZYPREXA [Concomitant]
     Active Substance: OLANZAPINE
     Indication: Agitation
     Dates: start: 20240821
  3. Ativan IV [Concomitant]
     Indication: Agitation
     Dates: start: 20240821

REACTIONS (1)
  - Tachycardia [Unknown]

NARRATIVE: CASE EVENT DATE: 20240821
